FAERS Safety Report 22334201 (Version 2)
Quarter: 2023Q2

REPORT INFORMATION
  Report Type: Report from Study
  Country: US (occurrence: US)
  Receive Date: 20230517
  Receipt Date: 20230526
  Transmission Date: 20230721
  Serious: No
  Sender: FDA-Public Use
  Company Number: US-PFIZER INC-US-GBT-021884

PATIENT
  Age: 12 Year
  Sex: Male

DRUGS (2)
  1. VOXELOTOR [Suspect]
     Active Substance: VOXELOTOR
     Indication: Sickle cell disease
     Dosage: 900 MG, 1X/DAY (CUMULATIVE DOSAGE: 67500 MG)
     Dates: start: 20230112, end: 20230327
  2. VOXELOTOR [Suspect]
     Active Substance: VOXELOTOR
     Indication: Anaemia

REACTIONS (1)
  - Abdominal pain [Unknown]

NARRATIVE: CASE EVENT DATE: 20230327
